FAERS Safety Report 8879949 (Version 2)
Quarter: 2013Q1

REPORT INFORMATION
  Report Type: Spontaneous
  Country: US (occurrence: US)
  Receive Date: 20121031
  Receipt Date: 20130205
  Transmission Date: 20140127
  Serious: Yes (Hospitalization)
  Sender: FDA-Public Use
  Company Number: US-B.I. PHARMACEUTICALS,INC./RIDGEFIELD-2012-BP-26750BP

PATIENT
  Age: 73 Year
  Sex: Male
  Weight: 86.18 kg

DRUGS (2)
  1. SPIRIVA [Suspect]
     Indication: CHRONIC OBSTRUCTIVE PULMONARY DISEASE
     Dosage: 18 MCG
     Route: 055
     Dates: start: 201201, end: 20121010
  2. VENTOLIN [Concomitant]

REACTIONS (3)
  - Pneumonia [Recovered/Resolved]
  - Pulmonary fibrosis [Unknown]
  - Bronchitis [Unknown]
